FAERS Safety Report 18435362 (Version 2)
Quarter: 2020Q4

REPORT INFORMATION
  Report Type: Spontaneous
  Country: BG (occurrence: BG)
  Receive Date: 20201027
  Receipt Date: 20201116
  Transmission Date: 20210114
  Serious: Yes (Other)
  Sender: FDA-Public Use
  Company Number: BG-ROCHE-2702772

PATIENT
  Age: 74 Year
  Sex: Female

DRUGS (26)
  1. SINTROM [Concomitant]
     Active Substance: ACENOCOUMAROL
     Dosage: AS PER REGIMEN
     Route: 048
     Dates: start: 20201013, end: 20201019
  2. TRIFAS [Concomitant]
     Dosage: 1 TABLET - IN THE MORNING
     Dates: end: 20201002
  3. BISOR (BULGARIA) [Concomitant]
     Dosage: ONCE A DAY IN THE MORNING
     Route: 048
     Dates: start: 20201013, end: 20201019
  4. CORDARONE [Concomitant]
     Active Substance: AMIODARONE HYDROCHLORIDE
     Dosage: 150 MG/ 3 ML
     Route: 042
     Dates: start: 20201002, end: 20201010
  5. NACL [Concomitant]
     Active Substance: SODIUM CHLORIDE
     Route: 042
     Dates: start: 20201002, end: 20201010
  6. CORDARONE [Concomitant]
     Active Substance: AMIODARONE HYDROCHLORIDE
     Route: 048
     Dates: start: 20201002, end: 20201010
  7. FURANTRIL [Concomitant]
     Active Substance: FUROSEMIDE
     Dosage: 2 X 1 TABLET PER DAY, 8:00 AND 16:00
     Route: 048
     Dates: start: 20201013, end: 20201019
  8. HEPARIN [Concomitant]
     Active Substance: HEPARIN SODIUM
     Dates: start: 20201002, end: 20201010
  9. PANTOPRAZOLE [Concomitant]
     Active Substance: PANTOPRAZOLE
     Dates: start: 20201002, end: 20201010
  10. NEUROTOP [Concomitant]
     Active Substance: CARBAMAZEPINE
     Dosage: 2X1 TABLET MORNING AND EVENING
     Route: 048
     Dates: start: 20201013, end: 20201019
  11. LIDOCAIN [Concomitant]
     Active Substance: LIDOCAINE
     Dates: start: 20201002, end: 20201010
  12. ROACTEMRA [Suspect]
     Active Substance: TOCILIZUMAB
     Indication: RHEUMATOID ARTHRITIS
     Dosage: ONGOING
     Route: 042
     Dates: start: 201508
  13. FRAXIPARINE [Concomitant]
     Active Substance: NADROPARIN CALCIUM
     Dosage: 0.6 UNIT NOT REPORTED
     Dates: start: 20201002, end: 20201010
  14. MALTOFER FOL [Concomitant]
     Active Substance: FOLIC ACID\IRON POLYMALTOSE
     Dates: start: 20201002, end: 20201010
  15. CARDIFRIEND [Concomitant]
     Route: 048
     Dates: start: 20201002, end: 20201010
  16. BISOR (BULGARIA) [Concomitant]
     Route: 048
     Dates: start: 20201002, end: 20201010
  17. CORDARONE [Concomitant]
     Active Substance: AMIODARONE HYDROCHLORIDE
     Dosage: ONCE A DAY IN THE MORNING
     Route: 048
     Dates: start: 20201013, end: 20201019
  18. SPIRONOLACTONE. [Concomitant]
     Active Substance: SPIRONOLACTONE
     Dates: start: 20201002, end: 20201010
  19. SINTROM [Concomitant]
     Active Substance: ACENOCOUMAROL
     Route: 048
     Dates: start: 20201002, end: 20201010
  20. CARDIFRIEND [Concomitant]
     Dosage: HALF TABLET PER DAY, IN THE MORNING
     Route: 048
     Dates: start: 20201013, end: 20201019
  21. SPIRONOLACTONE. [Concomitant]
     Active Substance: SPIRONOLACTONE
     Dosage: ONCE A DAY IN THE MORNING
     Route: 048
     Dates: start: 20201013, end: 20201019
  22. KALINOR [Concomitant]
     Dates: start: 20201002, end: 20201010
  23. ACC 200 [Concomitant]
     Active Substance: ACETYLCYSTEINE
     Dosage: 1 POWDER DAILY (FOR 1 WEEK)
     Route: 048
     Dates: end: 20201002
  24. SOPRAL (BULGARIA) [Concomitant]
     Dosage: 1 TABLET IN THE EVENING FOR 1 MONTH
     Route: 048
     Dates: end: 20201002
  25. IDAFER [Concomitant]
     Route: 042
     Dates: start: 20201002, end: 20201010
  26. LANZACID [Concomitant]
     Dates: start: 20201002, end: 20201010

REACTIONS (2)
  - Mitral valve incompetence [Recovered/Resolved]
  - Pleural effusion [Unknown]

NARRATIVE: CASE EVENT DATE: 2020
